FAERS Safety Report 7827887-4 (Version None)
Quarter: 2011Q4

REPORT INFORMATION
  Report Type: 
  Country: None (occurrence: None)
  Receive Date: 20111020
  Receipt Date: 20111008
  Transmission Date: 20120403
  Serious: No
  Sender: FDA-Public Use
  Company Number: US-B.I. PHARMACEUTICALS,INC./RIDGEFIELD-2011-BP-23921BP

PATIENT
  Sex: Female

DRUGS (3)
  1. GABAPENTIN [Concomitant]
     Dosage: 300 MG
     Route: 048
     Dates: start: 20110929
  2. LEVOXYL [Concomitant]
     Indication: THYROID DISORDER
     Dosage: 50 MG
     Route: 048
     Dates: start: 20110101
  3. AGGRENOX [Suspect]
     Indication: CEREBROVASCULAR ACCIDENT PROPHYLAXIS
     Route: 048
     Dates: start: 20110929

REACTIONS (4)
  - DECREASED APPETITE [None]
  - DIARRHOEA [None]
  - NAUSEA [None]
  - SOMNOLENCE [None]
